FAERS Safety Report 4500763-0 (Version None)
Quarter: 2004Q4

REPORT INFORMATION
  Report Type: 
  Country: None (occurrence: None)
  Receive Date: 20041115
  Receipt Date: 20041005
  Transmission Date: 20050328
  Serious: Yes (Other)
  Sender: FDA-Public Use
  Company Number: 200417638US

PATIENT
  Sex: Female
  Weight: 95.5 kg

DRUGS (6)
  1. KETEK [Suspect]
     Indication: SINUSITIS
     Dates: start: 20040928, end: 20041001
  2. SYNTHROID [Concomitant]
     Indication: HYPOTHYROIDISM
     Dates: start: 19960501
  3. PROZAC [Concomitant]
     Indication: DEPRESSION
     Dates: start: 20031001
  4. ORTHO TRI-CYCLEN [Concomitant]
     Indication: CONTRACEPTION
     Dosage: DOSE: UNK
     Dates: start: 20010301
  5. VANIQA [Concomitant]
     Indication: HAIR GROWTH ABNORMAL
     Dosage: DOSE: UNK
     Dates: start: 20010101
  6. VITAMIN B-12 [Concomitant]
     Indication: HYPOVITAMINOSIS
     Dates: start: 20030801

REACTIONS (13)
  - ASTHENIA [None]
  - DIZZINESS [None]
  - DRUG EXPOSURE DURING PREGNANCY [None]
  - HEADACHE [None]
  - HEART RATE INCREASED [None]
  - HYPERTENSION [None]
  - INCOHERENT [None]
  - LOSS OF CONSCIOUSNESS [None]
  - NAUSEA [None]
  - TREMOR [None]
  - VISION BLURRED [None]
  - VISUAL ACUITY TESTS ABNORMAL [None]
  - VISUAL DISTURBANCE [None]
